FAERS Safety Report 4782456-8 (Version None)
Quarter: 2005Q3

REPORT INFORMATION
  Report Type: 
  Country: None (occurrence: None)
  Receive Date: 20050929
  Receipt Date: 20041115
  Transmission Date: 20060218
  Serious: No
  Sender: FDA-Public Use
  Company Number: 389562

PATIENT
  Age: 38 Year
  Sex: Female

DRUGS (1)
  1. COREG [Suspect]
     Indication: DRUG USE FOR UNKNOWN INDICATION
     Dosage: 25MG PER DAY
     Route: 048
     Dates: start: 20041113

REACTIONS (1)
  - DEPRESSION [None]
